FAERS Safety Report 10382870 (Version 3)
Quarter: 2014Q3

REPORT INFORMATION
  Report Type: Report from Study
  Country: US (occurrence: US)
  Receive Date: 20140813
  Receipt Date: 20140915
  Transmission Date: 20150326
  Serious: Yes (Hospitalization, Disabling)
  Sender: FDA-Public Use
  Company Number: US-ACTELION-A-NJ2014-97394

PATIENT
  Age: 15 Year
  Sex: Female

DRUGS (15)
  1. OMEPRAZOLE. [Concomitant]
     Active Substance: OMEPRAZOLE
     Dosage: 20 MG, QD
     Route: 048
  2. VITAMIN C [Concomitant]
     Active Substance: ASCORBIC ACID
  3. TRACLEER [Suspect]
     Active Substance: BOSENTAN\BOSENTAN MONOHYDRATE
     Indication: RAYNAUD^S PHENOMENON
     Dosage: 62.5 MG, BID
     Route: 048
     Dates: start: 200811, end: 2010
  4. BACTRIM DS [Concomitant]
     Active Substance: SULFAMETHOXAZOLE\TRIMETHOPRIM
  5. MYCOPHENOLATE [Concomitant]
     Active Substance: MYCOPHENOLIC ACID
     Dosage: 1000 MG, BID
  6. PREDNISONE. [Concomitant]
     Active Substance: PREDNISONE
  7. FERROUS SULFATE [Concomitant]
     Active Substance: FERROUS SULFATE\FERROUS SULFATE, DRIED
     Dosage: 324 MG, TID
     Route: 048
  8. TRACLEER [Suspect]
     Active Substance: BOSENTAN\BOSENTAN MONOHYDRATE
     Dosage: 62.5 MG, BID
     Route: 048
     Dates: start: 201101
  9. QVAR [Concomitant]
     Active Substance: BECLOMETHASONE DIPROPIONATE
     Dosage: 4 INHALATIONS, BID
     Route: 055
  10. HYDROXYCHLOROQUINE [Concomitant]
     Active Substance: HYDROXYCHLOROQUINE
     Dosage: 200 MG, QD
  11. ALBUTEROL. [Concomitant]
     Active Substance: ALBUTEROL
     Dosage: 2 INHALATIONS, Q6HRS PRN
     Route: 055
  12. CELLCEPT [Concomitant]
     Active Substance: MYCOPHENOLATE MOFETIL\MYCOPHENOLATE MOFETIL HYDROCHLORIDE
     Dosage: 500 MG, TAKE TWO BID
     Route: 048
  13. CALCIUM + VITAMIN D [Concomitant]
     Active Substance: CALCIUM\VITAMIN D
  14. PLAQUENIL [Concomitant]
     Active Substance: HYDROXYCHLOROQUINE SULFATE
     Dosage: 200 MG, QD
     Route: 048
  15. BECLOMETHASONE [Concomitant]
     Active Substance: BECLOMETHASONE
     Dosage: 4 UNK, UNK

REACTIONS (16)
  - Pneumonia [Not Recovered/Not Resolved]
  - Biopsy lung [Unknown]
  - Haemophilus infection [Unknown]
  - Exposure to mould [Unknown]
  - Bronchiectasis [Not Recovered/Not Resolved]
  - Pulmonary function test decreased [Unknown]
  - Abnormal loss of weight [Unknown]
  - Respiratory rate increased [Unknown]
  - Lower respiratory tract infection fungal [Not Recovered/Not Resolved]
  - Leukoderma [Not Recovered/Not Resolved]
  - Cough [Unknown]
  - Atypical pneumonia [Not Recovered/Not Resolved]
  - Nasopharyngitis [Not Recovered/Not Resolved]
  - Asthenia [Unknown]
  - Bronchopneumonia [Unknown]
  - Rhinovirus infection [Unknown]

NARRATIVE: CASE EVENT DATE: 2013
